FAERS Safety Report 25150125 (Version 2)
Quarter: 2025Q2

REPORT INFORMATION
  Report Type: Spontaneous
  Country: ES (occurrence: ES)
  Receive Date: 20250402
  Receipt Date: 20250602
  Transmission Date: 20250717
  Serious: Yes (Hospitalization, Other)
  Sender: SANOFI AVENTIS
  Company Number: ES-SA-2025SA080342

PATIENT
  Age: 74 Year
  Sex: Male

DRUGS (17)
  1. TOUJEO [Suspect]
     Active Substance: INSULIN GLARGINE
     Indication: Type 2 diabetes mellitus
     Route: 065
  2. TOUJEO [Suspect]
     Active Substance: INSULIN GLARGINE
     Route: 065
  3. TOUJEO [Suspect]
     Active Substance: INSULIN GLARGINE
     Dosage: 14 IU, QD
     Route: 065
  4. LINAGLIPTIN [Concomitant]
     Active Substance: LINAGLIPTIN
     Dosage: 1.000DF QD
  5. ACTRAPID [Concomitant]
     Active Substance: INSULIN HUMAN
  6. ACTRAPID [Concomitant]
     Active Substance: INSULIN HUMAN
  7. ACTRAPID [Concomitant]
     Active Substance: INSULIN HUMAN
  8. ACTRAPID [Concomitant]
     Active Substance: INSULIN HUMAN
  9. ACTRAPID [Concomitant]
     Active Substance: INSULIN HUMAN
  10. SERTRALINE [Concomitant]
     Active Substance: SERTRALINE HYDROCHLORIDE
     Dosage: 1.000DF QD
  11. DUTASTERIDE [Concomitant]
     Active Substance: DUTASTERIDE
     Dosage: 1.000DF QD
  12. METFORMIN [Concomitant]
     Active Substance: METFORMIN HYDROCHLORIDE
     Dosage: 1.000DF BID
  13. LIPOCOMB [EZETIMIBE;ROSUVASTATIN] [Concomitant]
     Dosage: 1 DF, QD,20MG/10MG
  14. LOSARTAN [Concomitant]
     Active Substance: LOSARTAN
     Dosage: 1.000DF QD
  15. BIOPLAK [Concomitant]
     Dosage: 1.000DF QD
  16. LANSOPRAZOLE [Concomitant]
     Active Substance: LANSOPRAZOLE
     Dosage: 1 DF, QD
  17. ALLOPURINOL [Concomitant]
     Active Substance: ALLOPURINOL
     Dosage: 1.000DF QD

REACTIONS (6)
  - Colitis [Recovered/Resolved]
  - Renal impairment [Not Recovered/Not Resolved]
  - Glomerular filtration rate decreased [Not Recovered/Not Resolved]
  - Vomiting [Recovered/Resolved]
  - Diabetes mellitus inadequate control [Not Recovered/Not Resolved]
  - Hyperglycaemia [Recovering/Resolving]

NARRATIVE: CASE EVENT DATE: 20250306
